FAERS Safety Report 5101925-4 (Version None)
Quarter: 2006Q3

REPORT INFORMATION
  Report Type: 
  Country: None (occurrence: None)
  Receive Date: 20060907
  Receipt Date: 20060825
  Transmission Date: 20061208
  Serious: Yes (Hospitalization)
  Sender: FDA-Public Use
  Company Number: 229150

PATIENT
  Age: 5 Year
  Sex: Male
  Weight: 32.5 kg

DRUGS (1)
  1. NUTROPIN AQ [Suspect]
     Indication: PRADER-WILLI SYNDROME
     Dosage: 0.7 MG, 7/WEEK, SUBCUTANEOUS
     Route: 058
     Dates: start: 20010131

REACTIONS (10)
  - APNOEA [None]
  - ATELECTASIS [None]
  - COUGH [None]
  - CYANOSIS [None]
  - INCREASED UPPER AIRWAY SECRETION [None]
  - LARYNGOSPASM [None]
  - LARYNGOTRACHEO BRONCHITIS [None]
  - PNEUMONIA [None]
  - RESPIRATORY DISORDER [None]
  - RESPIRATORY DISTRESS [None]
